FAERS Safety Report 6271881-4 (Version None)
Quarter: 2009Q3

REPORT INFORMATION
  Report Type: 
  Country: None (occurrence: None)
  Receive Date: 20090717
  Receipt Date: 20090714
  Transmission Date: 20100115
  Serious: Yes (Other)
  Sender: FDA-Public Use
  Company Number: PHEH2009US07057

PATIENT
  Sex: Female

DRUGS (2)
  1. EXJADE [Suspect]
     Indication: MULTIPLE MYELOMA
     Dosage: 1500 MG DAILY
     Route: 048
     Dates: start: 20090324
  2. NYSTATIN [Concomitant]

REACTIONS (6)
  - BACK PAIN [None]
  - NAUSEA [None]
  - SKIN EXFOLIATION [None]
  - SKIN ULCER [None]
  - STOMATITIS [None]
  - WOUND DRAINAGE [None]
